FAERS Safety Report 5259726-2 (Version None)
Quarter: 2007Q1

REPORT INFORMATION
  Report Type: 
  Country: None (occurrence: None)
  Receive Date: 20061117
  Receipt Date: 20060620
  Transmission Date: 20070707
  Serious: Yes (Other)
  Sender: FDA-Public Use
  Company Number: US-JNJFOC-20060601086

PATIENT
  Age: 75 Year
  Sex: Male
  Weight: 148.3262 kg

DRUGS (7)
  1. LEVAQUIN [Suspect]
     Indication: BRONCHITIS
     Dosage: 750 MG, 1 IN 1 DAY, ORAL
     Route: 048
     Dates: start: 20060523, end: 20060527
  2. LEVAQUIN [Suspect]
     Indication: SINUSITIS
     Dosage: 750 MG, 1 IN 1 DAY, ORAL
     Route: 048
     Dates: start: 20060523, end: 20060527
  3. ALTACE [Concomitant]
  4. AMARYL [Concomitant]
  5. AVANDAMET (ALL OTHER NON-THERAPEUTIC PRODUCTS) [Concomitant]
  6. CRESTOR [Concomitant]
  7. VICODIN [Concomitant]

REACTIONS (1)
  - HYPOGLYCAEMIA [None]
